FAERS Safety Report 25842042 (Version 1)
Quarter: 2025Q3

REPORT INFORMATION
  Report Type: Spontaneous
  Country: US (occurrence: None)
  Receive Date: 20250924
  Receipt Date: 20250924
  Transmission Date: 20251020
  Serious: Yes (Other)
  Sender: FDA-CTU
  Company Number: None

PATIENT
  Age: 20 Year
  Sex: Male

DRUGS (2)
  1. TACROLIMUS [Suspect]
     Active Substance: TACROLIMUS
     Dosage: FREQUENCY : TWICE A DAY;?
  2. ASTAGRAF XL [Suspect]
     Active Substance: TACROLIMUS

REACTIONS (5)
  - Therapy change [None]
  - Renal disorder [None]
  - Liver injury [None]
  - Off label use [None]
  - Heart transplant [None]
